FAERS Safety Report 4666345-5 (Version None)
Quarter: 2005Q2

REPORT INFORMATION
  Report Type: 
  Country: None (occurrence: None)
  Receive Date: 20050517
  Receipt Date: 20050502
  Transmission Date: 20051028
  Serious: Yes (Life-Threatening, Hospitalization, Other)
  Sender: FDA-Public Use
  Company Number: USA050392817

PATIENT
  Age: 50 Year
  Sex: Male
  Weight: 61 kg

DRUGS (10)
  1. GEMZAR [Suspect]
     Indication: BILE DUCT CANCER
     Dosage: 1000 MG/M2
     Dates: start: 20041027, end: 20050101
  2. METOPROLOL [Concomitant]
  3. FOLIC ACID [Concomitant]
  4. ASPIRIN [Concomitant]
  5. TRAZODONE [Concomitant]
  6. THIAMINE MONONITRATE [Concomitant]
  7. RISPERDAL [Concomitant]
  8. DIGOXIN [Concomitant]
  9. PHENYTOIN [Concomitant]
  10. LEVOTHYROXINE SODIUM [Concomitant]

REACTIONS (14)
  - ALANINE AMINOTRANSFERASE INCREASED [None]
  - ALCOHOL WITHDRAWAL SYNDROME [None]
  - ASPARTATE AMINOTRANSFERASE INCREASED [None]
  - ATELECTASIS [None]
  - BLOOD ALKALINE PHOSPHATASE INCREASED [None]
  - BLOOD LACTATE DEHYDROGENASE INCREASED [None]
  - DRUG DOSE OMISSION [None]
  - GAMMA-GLUTAMYLTRANSFERASE INCREASED [None]
  - MALIGNANT NEOPLASM PROGRESSION [None]
  - PANCREATITIS ACUTE [None]
  - PANCREATITIS NECROTISING [None]
  - PLEURAL EFFUSION [None]
  - PYREXIA [None]
  - RESPIRATORY DISORDER [None]
